FAERS Safety Report 18370236 (Version 1)
Quarter: 2020Q4

REPORT INFORMATION
  Report Type: Spontaneous
  Country: US (occurrence: US)
  Receive Date: 20201012
  Receipt Date: 20201012
  Transmission Date: 20210114
  Serious: Yes (Other)
  Sender: FDA-Public Use
  Company Number: US-CELLTRION INC.-2020US019848

PATIENT

DRUGS (1)
  1. INFLECTRA [Suspect]
     Active Substance: INFLIXIMAB-DYYB
     Indication: CROHN^S DISEASE
     Dosage: 900 MG INTRAVENOUSLY EVERY 8 WEEKS
     Route: 042
     Dates: start: 20181205, end: 20191226

REACTIONS (2)
  - Therapy cessation [Not Recovered/Not Resolved]
  - Malignant melanoma [Not Recovered/Not Resolved]
